FAERS Safety Report 22330722 (Version 1)
Quarter: 2023Q2

REPORT INFORMATION
  Report Type: Spontaneous
  Country: US (occurrence: None)
  Receive Date: 20230515
  Receipt Date: 20230515
  Transmission Date: 20230722
  Serious: No
  Sender: FDA-Public Use
  Company Number: None

PATIENT
  Age: 63 Year
  Sex: Female
  Weight: 54 kg

DRUGS (9)
  1. SUCRALFATE [Suspect]
     Active Substance: SUCRALFATE
     Indication: Gastritis
  2. SYNTHROID [Concomitant]
     Active Substance: LEVOTHYROXINE SODIUM
  3. LIOTHYRONINE [Concomitant]
     Active Substance: LIOTHYRONINE
  4. GABAPENTIN [Concomitant]
     Active Substance: GABAPENTIN
  5. astelepro [Concomitant]
  6. ZYRTEC [Concomitant]
     Active Substance: CETIRIZINE HYDROCHLORIDE
  7. VITAMIN D [Concomitant]
     Active Substance: VITAMIN D NOS
  8. VITAMIN K [Concomitant]
     Active Substance: PHYTONADIONE
  9. CALCIUM [Concomitant]
     Active Substance: CALCIUM

REACTIONS (6)
  - Vomiting [None]
  - Abdominal pain upper [None]
  - Diarrhoea [None]
  - Back pain [None]
  - Urinary retention [None]
  - Chromaturia [None]

NARRATIVE: CASE EVENT DATE: 20230318
